FAERS Safety Report 12089895 (Version 4)
Quarter: 2017Q1

REPORT INFORMATION
  Report Type: Spontaneous
  Country: US (occurrence: US)
  Receive Date: 20160218
  Receipt Date: 20170123
  Transmission Date: 20170428
  Serious: No
  Sender: FDA-Public Use
  Company Number: US-PFIZER INC-2016085504

PATIENT
  Age: 65 Year
  Sex: Female
  Weight: 79.82 kg

DRUGS (5)
  1. IBRANCE [Suspect]
     Active Substance: PALBOCICLIB
     Indication: BREAST CANCER METASTATIC
     Dosage: 125 MG, CYCLIC(DAYS 1-21, EVERY 28 DAYS)
     Route: 048
     Dates: start: 20160119
  2. METFORMIN [Concomitant]
     Active Substance: METFORMIN HYDROCHLORIDE
     Indication: BLOOD GLUCOSE ABNORMAL
     Dosage: UNK
  3. FASLODEX [Suspect]
     Active Substance: FULVESTRANT
     Dosage: UNK
     Dates: start: 20160413
  4. IBRANCE [Suspect]
     Active Substance: PALBOCICLIB
     Dosage: 125 MG, CYCLIC(DAYS 1-21, EVERY 28 DAYS)
     Route: 048
     Dates: start: 20160119
  5. IBRANCE [Suspect]
     Active Substance: PALBOCICLIB
     Dosage: UNK

REACTIONS (16)
  - Mass [Unknown]
  - Asthenia [Unknown]
  - Cough [Unknown]
  - Back pain [Recovered/Resolved]
  - Joint swelling [Unknown]
  - White blood cell count decreased [Unknown]
  - Red blood cell count decreased [Unknown]
  - Diarrhoea [Unknown]
  - Weight decreased [Unknown]
  - Pain [Unknown]
  - Vomiting [Unknown]
  - Upper respiratory tract infection [Unknown]
  - Respiratory tract congestion [Unknown]
  - Nausea [Unknown]
  - Haemoglobin decreased [Unknown]
  - Food poisoning [Unknown]
